FAERS Safety Report 5691864-2 (Version None)
Quarter: 2008Q2

REPORT INFORMATION
  Report Type: 
  Country: None (occurrence: None)
  Receive Date: 20080401
  Receipt Date: 20080401
  Transmission Date: 20081010
  Serious: Yes (Hospitalization)
  Sender: FDA-Public Use
  Company Number: None

PATIENT
  Sex: Female
  Weight: 55 kg

DRUGS (5)
  1. CISPLATIN [Suspect]
     Dosage: 77 MG
  2. GEMCITABINE HCL [Suspect]
     Dosage: 1544 MG
  3. LOPRESSOR [Concomitant]
  4. PERCOCET [Concomitant]
  5. ZOFRAN [Concomitant]

REACTIONS (4)
  - CONFUSIONAL STATE [None]
  - FATIGUE [None]
  - NAUSEA [None]
  - VOMITING [None]
